FAERS Safety Report 13380047 (Version 1)
Quarter: 2017Q1

REPORT INFORMATION
  Report Type: Report from Study
  Country: None (occurrence: JP)
  Receive Date: 20170328
  Receipt Date: 20170328
  Transmission Date: 20170429
  Serious: Yes (Hospitalization)
  Sender: FDA-Public Use
  Company Number: JP-ABBVIE-17P-087-1916926-00

PATIENT
  Age: 62 Year
  Sex: Male
  Weight: 55 kg

DRUGS (6)
  1. LIMAPROST ALFADEX [Concomitant]
     Active Substance: LIMAPROST
     Indication: SYRINGOMYELIA
     Route: 048
     Dates: start: 20160908
  2. VIEKIRAX [Suspect]
     Active Substance: OMBITASVIR\PARITAPREVIR\RITONAVIR
     Indication: CHRONIC HEPATITIS C
  3. VIEKIRAX [Suspect]
     Active Substance: OMBITASVIR\PARITAPREVIR\RITONAVIR
     Indication: VIRAEMIA
     Route: 048
     Dates: start: 20160902, end: 20161124
  4. CELECOXIB. [Concomitant]
     Active Substance: CELECOXIB
     Indication: SYRINGOMYELIA
     Route: 048
     Dates: end: 20161201
  5. VIEKIRAX [Suspect]
     Active Substance: OMBITASVIR\PARITAPREVIR\RITONAVIR
     Indication: HEPATIC CIRRHOSIS
  6. PREGABALIN. [Concomitant]
     Active Substance: PREGABALIN
     Indication: SYRINGOMYELIA
     Route: 048

REACTIONS (1)
  - Peripheral artery stenosis [Recovering/Resolving]

NARRATIVE: CASE EVENT DATE: 20161013
